FAERS Safety Report 5062774-9 (Version None)
Quarter: 2006Q3

REPORT INFORMATION
  Report Type: 
  Country: None (occurrence: None)
  Receive Date: 20060724
  Receipt Date: 20060712
  Transmission Date: 20061208
  Serious: Yes (Other)
  Sender: FDA-Public Use
  Company Number: 2006086835

PATIENT
  Age: 67 Year
  Sex: Male

DRUGS (2)
  1. ALPRAZOLAM [Suspect]
     Indication: DRUG USE FOR UNKNOWN INDICATION
     Dosage: 0.5 MG (0.5 MG, 1 IN 1 D), ORAL
     Route: 048
     Dates: start: 20060401, end: 20060101
  2. FRAGMIN [Suspect]
     Indication: THROMBOSIS
     Dosage: INTRAVENOUS
     Route: 042
     Dates: start: 20060401, end: 20060101

REACTIONS (3)
  - DYSPNOEA [None]
  - HYPOAESTHESIA [None]
  - SURGERY [None]
